FAERS Safety Report 7491585-X (Version None)
Quarter: 2011Q2

REPORT INFORMATION
  Report Type: 
  Country: None (occurrence: None)
  Receive Date: 20110519
  Receipt Date: 20110505
  Transmission Date: 20111010
  Serious: Yes (Hospitalization)
  Sender: FDA-Public Use
  Company Number: US-JNJFOC-20110503477

PATIENT
  Sex: Male
  Weight: 50.6 kg

DRUGS (12)
  1. MESALAMINE [Concomitant]
  2. VITAMIN D [Concomitant]
  3. REMICADE [Suspect]
     Indication: CROHN'S DISEASE
     Route: 042
     Dates: start: 20050501, end: 20080314
  4. HUMIRA [Concomitant]
     Dates: start: 20080401
  5. BUDESONIDE [Concomitant]
  6. SINGULAIR [Concomitant]
  7. MECLIZINE [Concomitant]
  8. FOLIC ACID [Concomitant]
  9. CALCIUM CARBONATE [Concomitant]
  10. RIFAXIMIN [Concomitant]
  11. MULTI-VITAMINS [Concomitant]
  12. VERAMYST NOS [Concomitant]

REACTIONS (1)
  - CROHN'S DISEASE [None]
